FAERS Safety Report 18382748 (Version 1)
Quarter: 2020Q4

REPORT INFORMATION
  Report Type: Spontaneous
  Country: US (occurrence: US)
  Receive Date: 20201014
  Receipt Date: 20201014
  Transmission Date: 20210114
  Serious: No
  Sender: FDA-Public Use
  Company Number: None

PATIENT
  Age: 67 Year
  Sex: Male
  Weight: 99.79 kg

DRUGS (21)
  1. CEFUROXIME AXETIL. [Concomitant]
     Active Substance: CEFUROXIME AXETIL
  2. VITAMIN B12 [Concomitant]
     Active Substance: CYANOCOBALAMIN
  3. TURMERIC [Concomitant]
     Active Substance: HERBALS\TURMERIC
  4. ASPIRIN 81 [Concomitant]
     Active Substance: ASPIRIN
  5. FLOMAX [Concomitant]
     Active Substance: TAMSULOSIN HYDROCHLORIDE
  6. OMEGA-3 FISH OIL [Concomitant]
     Active Substance: FISH OIL\OMEGA-3 FATTY ACIDS
  7. VITAMIN B COMPLEX [Concomitant]
     Active Substance: CYANOCOBALAMIN\DEXPANTHENOL\NIACINAMIDE\PYRIDOXINE HYDROCHLORIDE\RIBOFLAVIN 5^-PHOSPHATE SODIUM\THIAMINE HYDROCHLORIDE\VITAMIN B COMPLEX
  8. BIOTIN [Concomitant]
     Active Substance: BIOTIN
  9. CALCIUM 600+D HIGH POTENCY [Concomitant]
  10. TRELSTAR [Suspect]
     Active Substance: TRIPTORELIN PAMOATE
     Indication: PROSTATE CANCER
     Dosage: ?          OTHER FREQUENCY:ONCE Q 3 MONTHS;?
     Route: 030
     Dates: start: 20200824, end: 20201014
  11. GINGER EXTRACT [Concomitant]
  12. VITAMIN C [Concomitant]
     Active Substance: ASCORBIC ACID
  13. FOLIC ACID. [Concomitant]
     Active Substance: FOLIC ACID
  14. LEVOTHYROXINE SODIUM. [Concomitant]
     Active Substance: LEVOTHYROXINE SODIUM
  15. ALEVE [Concomitant]
     Active Substance: NAPROXEN SODIUM
  16. CHLORHEXIDINE GLUCONATE. [Concomitant]
     Active Substance: CHLORHEXIDINE GLUCONATE
  17. LISINOPRIL. [Concomitant]
     Active Substance: LISINOPRIL
  18. PROLIA [Concomitant]
     Active Substance: DENOSUMAB
  19. IBUPROFEN. [Concomitant]
     Active Substance: IBUPROFEN
  20. SIMVASTATIN. [Concomitant]
     Active Substance: SIMVASTATIN
  21. MAGNESIUM [Concomitant]
     Active Substance: MAGNESIUM

REACTIONS (1)
  - Anaemia [None]

NARRATIVE: CASE EVENT DATE: 20201014
